FAERS Safety Report 6044053-6 (Version None)
Quarter: 2009Q1

REPORT INFORMATION
  Report Type: 
  Country: None (occurrence: None)
  Receive Date: 20090114
  Receipt Date: 20090114
  Transmission Date: 20090719
  Serious: No
  Sender: FDA-Public Use
  Company Number: None

PATIENT
  Age: 54 Year
  Sex: Female
  Weight: 70.3075 kg

DRUGS (2)
  1. TRAMADOL HCL [Suspect]
     Indication: BACK PAIN
     Dosage: 2 TABS 1-2 TABS 3 X'S/D PO
     Route: 048
     Dates: start: 20080110, end: 20080110
  2. TRAMADOL HCL [Suspect]
     Indication: PAIN IN EXTREMITY
     Dosage: 2 TABS 1-2 TABS 3 X'S/D PO
     Route: 048
     Dates: start: 20080110, end: 20080110

REACTIONS (7)
  - DIZZINESS [None]
  - HYPERHIDROSIS [None]
  - MIGRAINE [None]
  - MUSCLE SPASMS [None]
  - NAUSEA [None]
  - SOMNOLENCE [None]
  - VOMITING [None]
